FAERS Safety Report 22018040 (Version 7)
Quarter: 2024Q2

REPORT INFORMATION
  Report Type: Spontaneous
  Country: CA (occurrence: CA)
  Receive Date: 20230221
  Receipt Date: 20240502
  Transmission Date: 20240716
  Serious: Yes (Other)
  Sender: FDA-Public Use
  Company Number: CA-PFIZER INC-202200591293

PATIENT
  Age: 39 Year
  Sex: Male

DRUGS (6)
  1. SOMATROPIN [Suspect]
     Active Substance: SOMATROPIN
     Indication: Growth hormone deficiency
     Dosage: 200 UG, 1X/DAY, 7 DAYS IN A WEEK (0.2 MG/DAY)
     Route: 058
     Dates: start: 20210615
  2. SOMATROPIN [Suspect]
     Active Substance: SOMATROPIN
     Dosage: 200 UG, 1X/DAY, 7 DAYS IN A WEEK
     Route: 058
     Dates: start: 20210615, end: 2021
  3. SOMATROPIN [Suspect]
     Active Substance: SOMATROPIN
     Dosage: 400 UG, 1X/DAY, 7 DAYS IN A WEEK
     Route: 058
     Dates: start: 2021
  4. SOMATROPIN [Suspect]
     Active Substance: SOMATROPIN
     Dosage: 500 UG, 1X/DAY, 7 DAYS IN A WEEK
     Route: 058
  5. CORTEF ACETATE [Concomitant]
     Active Substance: HYDROCORTISONE ACETATE
     Dosage: 15 MG
  6. SYNTHROID [Concomitant]
     Active Substance: LEVOTHYROXINE SODIUM
     Dosage: 137 UG

REACTIONS (4)
  - Brain neoplasm [Unknown]
  - Pituitary tumour benign [Unknown]
  - Condition aggravated [Unknown]
  - Intentional product misuse [Unknown]
